FAERS Safety Report 5129348-2 (Version None)
Quarter: 2006Q4

REPORT INFORMATION
  Report Type: 
  Country: None (occurrence: None)
  Receive Date: 20061012
  Receipt Date: 20061002
  Transmission Date: 20070319
  Serious: Yes (Hospitalization)
  Sender: FDA-Public Use
  Company Number: 2006120491

PATIENT
  Age: 53 Year
  Sex: Male

DRUGS (4)
  1. NIFEDIPINE [Suspect]
     Indication: HYPERTENSION
     Dosage: 30 MG, ORAL
     Route: 048
     Dates: start: 20060406
  2. SORAFENIB TOSILATE (SORAFENIB TOSILATE) [Suspect]
     Indication: RENAL CELL CARCINOMA STAGE UNSPECIFIED
     Dosage: 800 MG, ORAL
     Route: 048
     Dates: start: 20060811, end: 20060814
  3. AVASTIN [Concomitant]
  4. ACEBUTOLOL [Concomitant]

REACTIONS (8)
  - CONSTIPATION [None]
  - DRUG INEFFECTIVE [None]
  - HEADACHE [None]
  - HEPATIC CALCIFICATION [None]
  - HYPERTENSION [None]
  - PANCREATITIS [None]
  - SUBILEUS [None]
  - URINARY TRACT INFECTION ENTEROCOCCAL [None]
